FAERS Safety Report 15747647 (Version 1)
Quarter: 2018Q4

REPORT INFORMATION
  Report Type: Spontaneous
  Country: ZA (occurrence: ZA)
  Receive Date: 20181220
  Receipt Date: 20181220
  Transmission Date: 20190205
  Serious: Yes (Death, Hospitalization, Other)
  Sender: FDA-Public Use
  Company Number: ZA-BAXTER-2018BAX030426

PATIENT
  Age: 61 Year
  Sex: Female
  Weight: 81.3 kg

DRUGS (3)
  1. ENDOXAN VIAL 1G [Suspect]
     Active Substance: CYCLOPHOSPHAMIDE
     Indication: GLOMERULONEPHROPATHY
     Dosage: 6 DOSES
     Route: 042
     Dates: start: 201606, end: 201611
  2. ENDOXAN VIAL 1G [Suspect]
     Active Substance: CYCLOPHOSPHAMIDE
     Indication: DISEASE RECURRENCE
     Dosage: 6 DOSES
     Route: 042
     Dates: start: 20180605, end: 20181016
  3. ACICLOVIR [Concomitant]
     Active Substance: ACYCLOVIR
     Indication: PRODUCT USED FOR UNKNOWN INDICATION
     Route: 065

REACTIONS (6)
  - Cough [Unknown]
  - Ascites [Unknown]
  - Nausea [Recovered/Resolved]
  - Vomiting [Recovered/Resolved]
  - Klebsiella sepsis [Unknown]
  - Acute hepatic failure [Fatal]

NARRATIVE: CASE EVENT DATE: 20181016
